FAERS Safety Report 6494503-6 (Version None)
Quarter: 2009Q4

REPORT INFORMATION
  Report Type: 
  Country: None (occurrence: None)
  Receive Date: 20091214
  Receipt Date: 20090225
  Transmission Date: 20100525
  Serious: No
  Sender: FDA-Public Use
  Company Number: US-BRISTOL-MYERS SQUIBB COMPANY-14520951

PATIENT
  Age: 2 Decade
  Sex: Male

DRUGS (4)
  1. ABILIFY [Suspect]
     Indication: MAJOR DEPRESSION
  2. EFFEXOR [Concomitant]
  3. ELAVIL [Concomitant]
  4. NARCOTIC NOS [Concomitant]
     Indication: PAIN

REACTIONS (1)
  - RASH [None]
